FAERS Safety Report 19765915 (Version 4)
Quarter: 2022Q2

REPORT INFORMATION
  Report Type: Report from Study
  Country: ES (occurrence: None)
  Receive Date: 20210830
  Receipt Date: 20220607
  Transmission Date: 20220721
  Serious: Yes (Hospitalization)
  Sender: FDA-Public Use
  Company Number: ES-ROCHE-2674723

PATIENT
  Age: 62 Year
  Sex: Female
  Weight: 79.4 kg

DRUGS (2)
  1. ATEZOLIZUMAB [Suspect]
     Active Substance: ATEZOLIZUMAB
     Indication: Neoplasm malignant
     Route: 041
     Dates: start: 20190813
  2. ALECTINIB [Suspect]
     Active Substance: ALECTINIB
     Indication: Neoplasm malignant
     Route: 048
     Dates: start: 20190813

REACTIONS (1)
  - Blood creatinine increased [Recovered/Resolved]

NARRATIVE: CASE EVENT DATE: 20200908
